FAERS Safety Report 6613127-0 (Version None)
Quarter: 2010Q1

REPORT INFORMATION
  Report Type: 
  Country: None (occurrence: None)
  Receive Date: 20100304
  Receipt Date: 20100226
  Transmission Date: 20100710
  Serious: Yes (Death)
  Sender: FDA-Public Use
  Company Number: GB-TEVA-225878ISR

PATIENT
  Age: 47 Year
  Sex: Male

DRUGS (2)
  1. CITALOPRAM [Suspect]
  2. CLOZAPINE [Suspect]
     Indication: SCHIZOPHRENIA
     Dates: start: 20020621

REACTIONS (1)
  - CARDIAC ARREST [None]
